FAERS Safety Report 11926402 (Version 1)
Quarter: 2016Q1

REPORT INFORMATION
  Report Type: Spontaneous
  Country: US (occurrence: None)
  Receive Date: 20160115
  Receipt Date: 20160115
  Transmission Date: 20160526
  Serious: Yes (Death)
  Sender: FDA-Public Use
  Company Number: None

PATIENT
  Age: 69 Year
  Sex: Male

DRUGS (27)
  1. LASIX [Concomitant]
     Active Substance: FUROSEMIDE
  2. MAGNESIUM [Concomitant]
     Active Substance: MAGNESIUM
  3. MINOXIDIL. [Concomitant]
     Active Substance: MINOXIDIL
  4. LANTUS [Concomitant]
     Active Substance: INSULIN GLARGINE
  5. NOVOLOG [Concomitant]
     Active Substance: INSULIN ASPART
  6. SMZ-TMP [Concomitant]
     Active Substance: SULFAMETHOXAZOLE\TRIMETHOPRIM
  7. TACROLIMUS 0.5MG [Suspect]
     Active Substance: TACROLIMUS
     Indication: RENAL TRANSPLANT
     Route: 048
     Dates: start: 201508, end: 201601
  8. PROTONIX [Concomitant]
     Active Substance: PANTOPRAZOLE SODIUM
  9. ST JOSEPH AS CHW [Concomitant]
  10. MYCOPHENOLIC 360 MG [Suspect]
     Active Substance: MYCOPHENOLIC ACID
     Indication: RENAL TRANSPLANT
     Route: 048
     Dates: start: 201508, end: 201601
  11. HARVONI [Concomitant]
     Active Substance: LEDIPASVIR\SOFOSBUVIR
  12. MULTIVITAMIN [Concomitant]
     Active Substance: VITAMINS
  13. MYCELEX [Concomitant]
     Active Substance: CLOTRIMAZOLE
  14. VALCYTE [Concomitant]
     Active Substance: VALGANCICLOVIR HYDROCHLORIDE
  15. BABY ASPIRIN [Concomitant]
     Active Substance: ASPIRIN
  16. BACTRIM [Concomitant]
     Active Substance: SULFAMETHOXAZOLE\TRIMETHOPRIM
  17. COLACE [Concomitant]
     Active Substance: DOCUSATE SODIUM
  18. IMDUR [Concomitant]
     Active Substance: ISOSORBIDE MONONITRATE
  19. PREDNISONE. [Concomitant]
     Active Substance: PREDNISONE
  20. PROGRAF [Concomitant]
     Active Substance: TACROLIMUS\TACROLIMUS ANHYDROUS
  21. SPIRIVA [Concomitant]
     Active Substance: TIOTROPIUM BROMIDE MONOHYDRATE
  22. LABETALOL [Concomitant]
     Active Substance: LABETALOL\LABETALOL HYDROCHLORIDE
  23. MYFORTIC [Concomitant]
     Active Substance: MYCOPHENOLATE SODIUM
  24. ALVESCO [Concomitant]
     Active Substance: CICLESONIDE
  25. CLOTRIMAZOLE. [Concomitant]
     Active Substance: CLOTRIMAZOLE
  26. HYDRALAZINE [Concomitant]
     Active Substance: HYDRALAZINE HYDROCHLORIDE
  27. ZOCOR [Concomitant]
     Active Substance: SIMVASTATIN

REACTIONS (1)
  - Death [None]

NARRATIVE: CASE EVENT DATE: 20160111
